FAERS Safety Report 5040933-9 (Version None)
Quarter: 2006Q2

REPORT INFORMATION
  Report Type: 
  Country: None (occurrence: None)
  Receive Date: 20060630
  Receipt Date: 20060630
  Transmission Date: 20061013
  Serious: Yes (Hospitalization)
  Sender: FDA-Public Use
  Company Number: None

PATIENT
  Age: 84 Year
  Sex: Male
  Weight: 99.8 kg

DRUGS (4)
  1. ENBREL [Suspect]
  2. METHOTREXATE NA [Concomitant]
  3. HYDROXYCHLOROQUINE SULFATE [Concomitant]
  4. FOLIC ACID [Concomitant]

REACTIONS (1)
  - BLINDNESS [None]
